FAERS Safety Report 25300706 (Version 1)
Quarter: 2025Q2

REPORT INFORMATION
  Report Type: Spontaneous
  Country: US (occurrence: US)
  Receive Date: 20250512
  Receipt Date: 20250512
  Transmission Date: 20250717
  Serious: No
  Sender: GALPHARM INTERNATIONAL
  Company Number: US-PERRIGO-24US011083

PATIENT
  Sex: Female

DRUGS (1)
  1. MICONAZOLE NITRATE [Suspect]
     Active Substance: MICONAZOLE NITRATE
     Indication: Product used for unknown indication
     Route: 067
     Dates: start: 20241118

REACTIONS (2)
  - Vulvovaginal pain [Not Recovered/Not Resolved]
  - Vulvovaginal pruritus [Not Recovered/Not Resolved]

NARRATIVE: CASE EVENT DATE: 20241118
